FAERS Safety Report 23008621 (Version 2)
Quarter: 2023Q4

REPORT INFORMATION
  Report Type: Spontaneous
  Country: JP (occurrence: JP)
  Receive Date: 20230929
  Receipt Date: 20231222
  Transmission Date: 20240110
  Serious: Yes (Death, Other)
  Sender: FDA-Public Use
  Company Number: JP-AMERICAN REGENT INC-2023002295

PATIENT
  Age: 67 Year
  Sex: Female
  Weight: 39 kg

DRUGS (10)
  1. TRANSAMIN [Suspect]
     Active Substance: TRANEXAMIC ACID
     Indication: Product used for unknown indication
     Dosage: 1 GRAM, QD
     Route: 065
  2. WARFARIN POTASSIUM [Suspect]
     Active Substance: WARFARIN POTASSIUM
     Indication: Aortic valve replacement
     Dosage: 2.75 MILLIGRAM, QD
     Route: 048
  3. PROTAMINE SULFATE [Suspect]
     Active Substance: PROTAMINE SULFATE
     Indication: Heparin neutralisation therapy
     Dosage: 150 MILLIGRAM, QD REGIMEN #1
     Route: 065
  4. PROTAMINE SULFATE [Suspect]
     Active Substance: PROTAMINE SULFATE
     Dosage: 150 MILLIGRAM, QD REGIMEN #2
     Route: 065
  5. PROTAMINE SULFATE [Suspect]
     Active Substance: PROTAMINE SULFATE
     Dosage: 50 MILLIGRAM, QD REGIMEN #3
     Route: 065
  6. PROTHROMBIN COMPLEX CONCENTRATE NOS [Suspect]
     Active Substance: COAGULATION FACTOR IX HUMAN\COAGULATION FACTOR VII HUMAN\COAGULATION FACTOR X HUMAN\PROTHROMBIN
     Indication: Procoagulant therapy
     Dosage: 2000 INTERNATIONAL UNIT, QD
     Route: 065
  7. HEPARIN [Concomitant]
     Active Substance: HEPARIN SODIUM
     Indication: Extracorporeal circulation
     Dosage: 12000 UNITS REGIMEN #1
     Route: 065
  8. HEPARIN [Concomitant]
     Active Substance: HEPARIN SODIUM
     Dosage: 15000 UNITS
     Route: 065
  9. HEPARIN [Concomitant]
     Active Substance: HEPARIN SODIUM
     Dosage: 15000 UNITS
     Route: 065
  10. HEPARIN [Concomitant]
     Active Substance: HEPARIN SODIUM
     Dosage: 15000 UNITS
     Route: 065

REACTIONS (2)
  - Thrombosis in device [Unknown]
  - Atrial thrombosis [Fatal]
